FAERS Safety Report 8130451-3 (Version None)
Quarter: 2012Q1

REPORT INFORMATION
  Report Type: 
  Country: None (occurrence: None)
  Receive Date: 20120210
  Receipt Date: 20120202
  Transmission Date: 20120608
  Serious: Yes (Hospitalization, Disabling, Other)
  Sender: FDA-Public Use
  Company Number: US-MERCK-1106USA03847

PATIENT
  Age: 76 Year
  Sex: Female
  Weight: 55 kg

DRUGS (6)
  1. FOSAMAX [Suspect]
     Indication: OSTEOPOROSIS
     Route: 048
     Dates: start: 20010101
  2. FOSAMAX [Suspect]
     Route: 048
     Dates: start: 20020419, end: 20110101
  3. FOSAMAX [Suspect]
     Indication: OSTEOPENIA
     Route: 048
     Dates: start: 20010101
  4. FOSAMAX [Suspect]
     Route: 048
     Dates: start: 20020419, end: 20110101
  5. FOSAMAX [Suspect]
     Route: 065
     Dates: start: 20100419
  6. TOPROL-XL [Concomitant]
     Route: 048
     Dates: start: 20000101, end: 20100101

REACTIONS (45)
  - ADENOIDAL DISORDER [None]
  - OVARIAN DISORDER [None]
  - UTERINE DISORDER [None]
  - COELIAC ARTERY OCCLUSION [None]
  - URINARY TRACT INFECTION [None]
  - LEUKOPENIA [None]
  - CARDIAC MURMUR [None]
  - ANAEMIA POSTOPERATIVE [None]
  - OVERDOSE [None]
  - FALL [None]
  - VAGINITIS BACTERIAL [None]
  - ORAL DISORDER [None]
  - OSTEOARTHRITIS [None]
  - MICTURITION URGENCY [None]
  - HEADACHE [None]
  - FATIGUE [None]
  - RADICULOPATHY [None]
  - SPONDYLITIS [None]
  - CHEST DISCOMFORT [None]
  - ANKLE FRACTURE [None]
  - RENAL FAILURE [None]
  - SPINAL CORD COMPRESSION [None]
  - CYSTITIS [None]
  - BURSITIS [None]
  - HYPOTENSION [None]
  - FEELING HOT [None]
  - RASH [None]
  - FEMUR FRACTURE [None]
  - GAIT DISTURBANCE [None]
  - DEVICE FAILURE [None]
  - ANGINA UNSTABLE [None]
  - PAIN IN EXTREMITY [None]
  - DRUG HYPERSENSITIVITY [None]
  - ASTHENIA [None]
  - DYSPNOEA EXERTIONAL [None]
  - MUSCULAR WEAKNESS [None]
  - NASAL DISORDER [None]
  - FOOT DEFORMITY [None]
  - EUSTACHIAN TUBE DYSFUNCTION [None]
  - CEREBRAL ARTERIOSCLEROSIS [None]
  - TONSILLAR DISORDER [None]
  - INTERNATIONAL NORMALISED RATIO INCREASED [None]
  - UMBILICAL HERNIA [None]
  - THROMBOCYTOPENIA [None]
  - COLITIS MICROSCOPIC [None]
